FAERS Safety Report 6877221-1 (Version None)
Quarter: 2010Q3

REPORT INFORMATION
  Report Type: 
  Country: None (occurrence: None)
  Receive Date: 20100727
  Receipt Date: 20100607
  Transmission Date: 20110219
  Serious: No
  Sender: FDA-Public Use
  Company Number: US-ABBOTT-08P-163-0460394-00

PATIENT
  Sex: Female
  Weight: 141.65 kg

DRUGS (7)
  1. SYNTHROID [Suspect]
     Indication: HYPOTHYROIDISM
     Route: 048
     Dates: start: 19900101, end: 19930101
  2. SYNTHROID [Suspect]
     Route: 048
     Dates: start: 20020101, end: 20020101
  3. XANAX [Concomitant]
     Indication: ANXIETY
     Route: 048
     Dates: start: 19840101
  4. XANAX [Concomitant]
     Indication: PANIC ATTACK
  5. THYROID TAB [Concomitant]
     Indication: AUTOIMMUNE THYROIDITIS
     Route: 048
     Dates: end: 20080101
  6. THYROID TAB [Concomitant]
     Route: 048
     Dates: start: 20080101, end: 20080401
  7. THYROID TAB [Concomitant]
     Route: 048
     Dates: start: 20080401

REACTIONS (2)
  - CHEST DISCOMFORT [None]
  - CHEST PAIN [None]
